FAERS Safety Report 10960028 (Version 2)
Quarter: 2015Q2

REPORT INFORMATION
  Report Type: Spontaneous
  Country: GB (occurrence: GB)
  Receive Date: 20150327
  Receipt Date: 20150630
  Transmission Date: 20150821
  Serious: Yes (Death, Other)
  Sender: FDA-Public Use
  Company Number: GB-CELGENE-167-20785-13043301

PATIENT

DRUGS (3)
  1. BENDAMUSTINE [Concomitant]
     Active Substance: BENDAMUSTINE
     Indication: PLASMA CELL MYELOMA
     Dosage: 100-200MG/M2
     Route: 065
  2. DEXAMETHASONE. [Concomitant]
     Active Substance: DEXAMETHASONE
     Indication: PLASMA CELL MYELOMA
     Dosage: UP TO 160MG PER CYLCE AS TOLERATED
     Route: 065
  3. THALIDOMIDE [Suspect]
     Active Substance: THALIDOMIDE
     Indication: PLASMA CELL MYELOMA
     Dosage: 50-150MG
     Route: 048

REACTIONS (20)
  - Pyrexia [Unknown]
  - Blood creatinine increased [Unknown]
  - Fracture [Unknown]
  - Arrhythmia [Unknown]
  - Plasma cell myeloma [Fatal]
  - Alanine aminotransferase increased [Unknown]
  - Dehydration [Unknown]
  - Neutropenic sepsis [Fatal]
  - Diarrhoea [Unknown]
  - Peripheral sensory neuropathy [Unknown]
  - Vomiting [Unknown]
  - Neuropathy peripheral [Unknown]
  - Infection [Unknown]
  - Fatigue [Unknown]
  - Hyponatraemia [Unknown]
  - Pain [Unknown]
  - Haemorrhage [Unknown]
  - Neutropenia [Unknown]
  - Thrombocytopenia [Unknown]
  - Anaemia [Unknown]
